FAERS Safety Report 24168913 (Version 1)
Quarter: 2024Q3

REPORT INFORMATION
  Report Type: Other
  Country: NL (occurrence: NL)
  Receive Date: 20240802
  Receipt Date: 20240802
  Transmission Date: 20241017
  Serious: Yes (Hospitalization, Other)
  Sender: GLENMARK
  Company Number: None

PATIENT

DRUGS (2)
  1. TELMISARTAN [Suspect]
     Active Substance: TELMISARTAN
     Indication: Hypertension
     Dosage: 40 MILLIGRAM EVERY 12 HOURS (40 MG NAAR 80 OPGEHOOGD, OCHTENDDOSIA VAN 40 MG OM 14.30 MET NOGEENS 40
     Route: 065
     Dates: start: 20240703, end: 20240704
  2. TELMISARTAN [Suspect]
     Active Substance: TELMISARTAN
     Indication: Extrasystoles

REACTIONS (5)
  - Supraventricular extrasystoles [Recovered/Resolved]
  - Arrhythmia [Recovered/Resolved]
  - Hypertension [Recovered/Resolved]
  - Tachycardia [Recovered/Resolved]
  - Drug ineffective [Unknown]
